FAERS Safety Report 6262124-6 (Version None)
Quarter: 2009Q3

REPORT INFORMATION
  Report Type: 
  Country: None (occurrence: None)
  Receive Date: 20090709
  Receipt Date: 20090701
  Transmission Date: 20100115
  Serious: Yes (Hospitalization)
  Sender: FDA-Public Use
  Company Number: FR-JNJFOC-20090406259

PATIENT
  Age: 87 Year
  Sex: Male
  Weight: 60 kg

DRUGS (4)
  1. REMICADE [Suspect]
     Route: 042
  2. REMICADE [Suspect]
     Route: 042
  3. REMICADE [Suspect]
     Indication: PSORIASIS
     Dosage: 6 INFUSIONS
     Route: 042
  4. ATARAX [Concomitant]
     Indication: PRURITUS
     Dosage: FOR SEVERAL YEARS
     Route: 048

REACTIONS (5)
  - BACK PAIN [None]
  - CHEST PAIN [None]
  - INFUSION RELATED REACTION [None]
  - PAIN IN EXTREMITY [None]
  - THERAPEUTIC RESPONSE DECREASED [None]
